FAERS Safety Report 5965193-3 (Version None)
Quarter: 2008Q4

REPORT INFORMATION
  Report Type: 
  Country: None (occurrence: None)
  Receive Date: 20081125
  Receipt Date: 20081117
  Transmission Date: 20090506
  Serious: No
  Sender: FDA-Public Use
  Company Number: ES-EISAI MEDICAL RESEARCH-E2090-00322-SPO-ES

PATIENT
  Age: 36 Year
  Sex: Male
  Weight: 80 kg

DRUGS (3)
  1. ZONEGRAN [Suspect]
     Indication: EPILEPSY
     Route: 048
     Dates: start: 20070501
  2. LABILENO [Concomitant]
     Indication: EPILEPSY
     Route: 048
     Dates: start: 20050101
  3. LABILENO [Concomitant]
     Route: 048

REACTIONS (1)
  - RENAL FAILURE [None]
